FAERS Safety Report 6332559-1 (Version None)
Quarter: 2009Q3

REPORT INFORMATION
  Report Type: 
  Country: None (occurrence: None)
  Receive Date: 20090828
  Receipt Date: 20090818
  Transmission Date: 20100115
  Serious: Yes (Other)
  Sender: FDA-Public Use
  Company Number: JP-PFIZER INC-2009250028

PATIENT
  Age: 75 Year

DRUGS (5)
  1. ZITHROMAC SR [Suspect]
     Indication: BRONCHITIS
     Dosage: 2 G, SINGLE
     Route: 048
     Dates: start: 20090723, end: 20090723
  2. METHOTREXATE [Concomitant]
  3. MUCODYNE [Concomitant]
     Dates: start: 20090723
  4. CLARITH [Concomitant]
     Route: 048
     Dates: start: 20090715
  5. LEVOFLOXACIN [Concomitant]
     Route: 048
     Dates: start: 20090715

REACTIONS (1)
  - HEPATIC FUNCTION ABNORMAL [None]
